FAERS Safety Report 12593801 (Version 1)
Quarter: 2016Q3

REPORT INFORMATION
  Report Type: Spontaneous
  Country: US (occurrence: US)
  Receive Date: 20160726
  Receipt Date: 20160726
  Transmission Date: 20161109
  Serious: Yes (Death)
  Sender: FDA-Public Use
  Company Number: US-PFIZER INC-2016355103

PATIENT
  Age: 65 Year
  Sex: Male

DRUGS (3)
  1. PENICILLIN [Concomitant]
     Active Substance: PENICILLIN
     Indication: STAPHYLOCOCCAL INFECTION
     Dosage: UNK
  2. ERYTHROMYCIN. [Suspect]
     Active Substance: ERYTHROMYCIN
     Indication: STAPHYLOCOCCAL INFECTION
     Dosage: UNK
  3. CHLORAMPHENICOL [Suspect]
     Active Substance: CHLORAMPHENICOL
     Indication: STAPHYLOCOCCAL INFECTION
     Dosage: UNK

REACTIONS (1)
  - Drug ineffective [Fatal]
